FAERS Safety Report 5023119-3 (Version None)
Quarter: 2006Q2

REPORT INFORMATION
  Report Type: 
  Country: None (occurrence: None)
  Receive Date: 20060428
  Receipt Date: 20060202
  Transmission Date: 20061013
  Serious: No
  Sender: FDA-Public Use
  Company Number: 012114

PATIENT
  Age: 49 Year

DRUGS (10)
  1. PRIALT [Suspect]
     Indication: PAIN
     Dosage: SEE IMAGE
     Route: 037
     Dates: start: 20050601, end: 20050727
  2. PRIALT [Suspect]
     Indication: PAIN
     Dosage: SEE IMAGE
     Route: 037
     Dates: start: 20050727, end: 20050808
  3. PRIALT [Suspect]
     Indication: PAIN
     Dosage: SEE IMAGE
     Route: 037
     Dates: start: 20050808, end: 20050812
  4. PRIALT [Suspect]
     Indication: PAIN
     Dosage: SEE IMAGE
     Route: 037
     Dates: start: 20050812, end: 20050817
  5. PRIALT [Suspect]
     Indication: PAIN
     Dosage: SEE IMAGE
     Route: 037
     Dates: start: 20050817
  6. MORPHINE [Concomitant]
  7. DILAUDID [Concomitant]
  8. FENTANYL [Concomitant]
  9. BUPIVACAINE [Concomitant]
  10. BACLOFEN [Concomitant]

REACTIONS (1)
  - OEDEMA PERIPHERAL [None]
